FAERS Safety Report 14664467 (Version 3)
Quarter: 2018Q2

REPORT INFORMATION
  Report Type: Spontaneous
  Country: JP (occurrence: JP)
  Receive Date: 20180321
  Receipt Date: 20180426
  Transmission Date: 20180711
  Serious: Yes (Other)
  Sender: FDA-Public Use
  Company Number: JP-PFIZER INC-2018116046

PATIENT
  Age: 40 Year
  Sex: Female
  Weight: 90 kg

DRUGS (9)
  1. OXYTOCIN. [Concomitant]
     Active Substance: OXYTOCIN
     Dosage: 5 UNITES
     Route: 030
  2. NICARDIPINE HYDROCHLORIDE. [Concomitant]
     Active Substance: NICARDIPINE HYDROCHLORIDE
     Dosage: 2MG/HR
  3. VERAPAMIL HCL [Suspect]
     Active Substance: VERAPAMIL HYDROCHLORIDE
     Dosage: 150 UG, QD
     Route: 024
  4. HYDROCHLOROTHIAZIDE W/TELMISARTAN [Concomitant]
     Active Substance: HYDROCHLOROTHIAZIDE\TELMISARTAN
     Dosage: 1 TABLET/DAY
  5. BUPIVACAINE HYDROCHLORIDE. [Concomitant]
     Active Substance: BUPIVACAINE HYDROCHLORIDE
     Dosage: 12 MG, UNK
  6. FENTANYL. [Concomitant]
     Active Substance: FENTANYL
     Dosage: 10 UG, UNK
  7. AMLODIN [Suspect]
     Active Substance: AMLODIPINE BESYLATE
     Indication: HYPERTENSION
     Dosage: 5 MG, QD
     Route: 048
  8. OXYTOCIN. [Concomitant]
     Active Substance: OXYTOCIN
     Dosage: 5 UNITES
  9. MAGNESIUM SULFATE. [Concomitant]
     Active Substance: MAGNESIUM SULFATE
     Dosage: 1G/HR

REACTIONS (2)
  - Hypotension [Recovering/Resolving]
  - Depressed level of consciousness [Recovering/Resolving]
